FAERS Safety Report 9944617 (Version 1)
Quarter: 2014Q1

REPORT INFORMATION
  Report Type: Report from Study
  Country: US (occurrence: US)
  Receive Date: 20140303
  Receipt Date: 20140303
  Transmission Date: 20141002
  Serious: No
  Sender: FDA-Public Use
  Company Number: US-ABBVIE-13P-163-1054436-00

PATIENT
  Age: 77 Year
  Sex: Male
  Weight: 81.27 kg

DRUGS (3)
  1. HUMIRA [Suspect]
     Indication: CROHN^S DISEASE
     Dates: start: 201211
  2. METHALAMINE [Concomitant]
     Indication: CROHN^S DISEASE
  3. INH [Concomitant]
     Indication: MYCOBACTERIUM TUBERCULOSIS COMPLEX TEST POSITIVE

REACTIONS (5)
  - Incorrect route of drug administration [Recovered/Resolved]
  - Wrong technique in drug usage process [Recovered/Resolved]
  - Diarrhoea [Recovering/Resolving]
  - Dysgeusia [Recovered/Resolved]
  - Abdominal pain [Recovered/Resolved]
